FAERS Safety Report 10786672 (Version 3)
Quarter: 2020Q3

REPORT INFORMATION
  Report Type: Report from Study
  Country: JP (occurrence: JP)
  Receive Date: 20150211
  Receipt Date: 20150414
  Transmission Date: 20201105
  Serious: Yes (Other)
  Sender: FDA-Public Use
  Company Number: JP-BAYER-2015-018889

PATIENT
  Age: 58 Year
  Sex: Male
  Weight: 66 kg

DRUGS (24)
  1. CELESTAMINE [Concomitant]
     Active Substance: BETAMETHASONE\DEXCHLORPHENIRAMINE MALEATE
     Indication: RASH
     Dosage: 1 DF, TID
     Route: 048
     Dates: start: 20141217
  2. MINOCYCLINE\MINOCYCLINE HYDROCHLORIDE [Concomitant]
     Active Substance: MINOCYCLINE HYDROCHLORIDE
     Indication: RASH
     Dosage: 100 MG, BID
     Route: 048
     Dates: start: 20141209
  3. BLOPRESS [Concomitant]
     Active Substance: CANDESARTAN CILEXETIL
     Indication: HYPERTENSION
     Dosage: 8 MG, QD
     Route: 048
     Dates: start: 20141229
  4. RINDERON VG [Concomitant]
     Active Substance: BETAMETHASONE VALERATE\GENTAMICIN SULFATE
     Indication: RASH
     Dosage: UNK
     Route: 061
     Dates: start: 20141223
  5. REFAMETINIB. [Suspect]
     Active Substance: REFAMETINIB
     Indication: HEPATOCELLULAR CARCINOMA
     Dosage: 40 MG/DAY
     Route: 048
     Dates: start: 20141223, end: 20150119
  6. FEXOFENADINE HYDROCHLORIDE. [Concomitant]
     Active Substance: FEXOFENADINE HYDROCHLORIDE
     Indication: RASH
     Dosage: 60 MG, BID
     Route: 048
     Dates: start: 20141209
  7. HACHIAZULE [Concomitant]
     Indication: STOMATITIS
     Dosage: UNK
     Route: 002
     Dates: start: 20141216
  8. REFAMETINIB. [Suspect]
     Active Substance: REFAMETINIB
     Indication: HEPATOCELLULAR CARCINOMA
     Dosage: 100 MG/DAY
     Route: 048
     Dates: start: 20141202, end: 20141208
  9. CALBLOCK [Concomitant]
     Active Substance: AZELNIDIPINE
     Indication: HYPERTENSION
     Dosage: 16 MG, QD
     Route: 048
     Dates: start: 20141209
  10. AMLODIPINE [Concomitant]
     Active Substance: AMLODIPINE BESYLATE
     Indication: HYPERTENSION
     Dosage: 5 MG, BID
     Route: 048
     Dates: start: 20150113
  11. REFAMETINIB. [Suspect]
     Active Substance: REFAMETINIB
     Indication: HEPATOCELLULAR CARCINOMA
     Dosage: 60 MG/DAY
     Route: 048
     Dates: start: 20141209, end: 20141215
  12. SORAFENIB (RAF KINASE INHIBITOR) [Suspect]
     Active Substance: SORAFENIB
     Indication: HEPATOCELLULAR CARCINOMA
     Dosage: 600 MG/DAY
     Route: 048
     Dates: start: 20150120, end: 20150203
  13. UREPEARL [Concomitant]
     Active Substance: UREA
     Indication: DRUG TOXICITY PROPHYLAXIS
     Dosage: UNK
     Route: 061
     Dates: start: 20141202
  14. POSTERISAN [Concomitant]
     Active Substance: LIDOCAINE
     Indication: DIARRHOEA
     Dosage: UNK
     Route: 061
     Dates: start: 20141209
  15. REFAMETINIB. [Suspect]
     Active Substance: REFAMETINIB
     Indication: HEPATOCELLULAR CARCINOMA
     Dosage: 60 MG/DAY
     Route: 048
     Dates: start: 20150120, end: 20150203
  16. SORAFENIB (RAF KINASE INHIBITOR) [Suspect]
     Active Substance: SORAFENIB
     Indication: HEPATOCELLULAR CARCINOMA
     Dosage: 400 MG/DAY
     Route: 048
     Dates: start: 20141223, end: 20150119
  17. GOREI?SAN [Concomitant]
     Active Substance: HERBALS
     Indication: DIARRHOEA
     Dosage: 1.5 G, TID
     Route: 048
     Dates: start: 20141203
  18. LOPERAMIDE [Concomitant]
     Active Substance: LOPERAMIDE
     Indication: DIARRHOEA
     Dosage: UNK
     Route: 048
     Dates: start: 20141203
  19. REBAMIPIDE [Concomitant]
     Active Substance: REBAMIPIDE
     Indication: GASTRITIS PROPHYLAXIS
     Dosage: 100 MG, TID
     Route: 048
     Dates: start: 20141217
  20. SORAFENIB (RAF KINASE INHIBITOR) [Suspect]
     Active Substance: SORAFENIB
     Indication: HEPATOCELLULAR CARCINOMA
     Dosage: 600 MG/DAY
     Route: 048
     Dates: start: 20141202, end: 20141208
  21. GOODMIN [Concomitant]
     Active Substance: BROTIZOLAM
     Indication: INSOMNIA
     Dosage: 0.25 MG, QD
     Route: 048
     Dates: start: 20130829
  22. MIYA?BM [Concomitant]
     Active Substance: CLOSTRIDIUM BUTYRICUM SPORES STRAIN M-55
     Indication: DIARRHOEA
     Dosage: 1 G, TID
     Route: 048
     Dates: start: 20141203
  23. KENALOG [Concomitant]
     Active Substance: TRIAMCINOLONE ACETONIDE
     Indication: STOMATITIS
     Dosage: UNK
     Route: 061
     Dates: start: 20141223
  24. RINDERON VG [Concomitant]
     Active Substance: BETAMETHASONE VALERATE\GENTAMICIN SULFATE
     Indication: PALMAR-PLANTAR ERYTHRODYSAESTHESIA SYNDROME
     Dosage: UNK
     Route: 061
     Dates: start: 20141216

REACTIONS (1)
  - Blood creatine phosphokinase increased [Recovered/Resolved]

NARRATIVE: CASE EVENT DATE: 20150203
